FAERS Safety Report 19511417 (Version 2)
Quarter: 2021Q3

REPORT INFORMATION
  Report Type: Spontaneous
  Country: TR (occurrence: TR)
  Receive Date: 20210709
  Receipt Date: 20210811
  Transmission Date: 20211014
  Serious: Yes (Hospitalization, Other)
  Sender: FDA-Public Use
  Company Number: TR-EVUS PHARMACEUTICALS, LLC-EPL202107-000061

PATIENT
  Age: 28 Week
  Sex: Male
  Weight: 1 kg

DRUGS (7)
  1. HEPARIN [Concomitant]
     Active Substance: HEPARIN SODIUM
     Dosage: LOW MOLECULAR WEIGHT HEPARIN WITH THE DOSE TITRATED TO GOAL LEVELS OF 0.5 TO 1 IU/ML.
  2. ALTEPLASE. [Concomitant]
     Active Substance: ALTEPLASE
     Dosage: 0.2 MG/KG/H
  3. NITROGLYCERIN. [Suspect]
     Active Substance: NITROGLYCERIN
     Dosage: 2% OF 4 MM/KG
     Route: 061
  4. ALTEPLASE. [Concomitant]
     Active Substance: ALTEPLASE
     Indication: ISCHAEMIA
     Dosage: 0.7 MG/KG OVER 30?60 MINUTES
     Route: 040
  5. NITROGLYCERIN. [Suspect]
     Active Substance: NITROGLYCERIN
     Indication: ISCHAEMIA
     Dosage: 0.5 MC/KG/MIN
     Route: 042
  6. HEPARIN [Concomitant]
     Active Substance: HEPARIN SODIUM
     Dosage: 5 IU/KG/H
  7. HEPARIN [Concomitant]
     Active Substance: HEPARIN SODIUM
     Indication: ISCHAEMIA
     Dosage: 10 IU/KG/H
     Route: 041

REACTIONS (3)
  - Product use in unapproved indication [Unknown]
  - Product use issue [Unknown]
  - Intraventricular haemorrhage [Recovered/Resolved]
